FAERS Safety Report 4761488-X (Version None)
Quarter: 2005Q3

REPORT INFORMATION
  Report Type: 
  Country: None (occurrence: None)
  Receive Date: 20050906
  Receipt Date: 20050830
  Transmission Date: 20060218
  Serious: Yes (Death, Hospitalization)
  Sender: FDA-Public Use
  Company Number: US-GLAXOSMITHKLINE-A0572861A

PATIENT
  Age: 37 Year
  Sex: Female
  Weight: 109 kg

DRUGS (5)
  1. TOPOTECAN [Suspect]
     Indication: SQUAMOUS CELL CARCINOMA OF THE CERVIX
     Dosage: .75MGM2 CYCLIC
     Route: 042
     Dates: start: 20010117
  2. CISPLATIN [Suspect]
     Indication: SQUAMOUS CELL CARCINOMA OF THE CERVIX
     Dosage: 50MGM2 CYCLIC
     Route: 042
     Dates: start: 20010117
  3. LEVAQUIN [Concomitant]
     Route: 042
     Dates: start: 20010216, end: 20010219
  4. PREMPRO [Concomitant]
     Dosage: 1TAB PER DAY
     Route: 048
  5. NEUPOGEN [Concomitant]

REACTIONS (7)
  - ACUTE RESPIRATORY DISTRESS SYNDROME [None]
  - DYSPNOEA [None]
  - NEUTROPENIA [None]
  - PALLOR [None]
  - PNEUMOCOCCAL INFECTION [None]
  - PULMONARY EMBOLISM [None]
  - RESPIRATORY DISORDER [None]
